FAERS Safety Report 10952028 (Version 1)
Quarter: 2015Q1

REPORT INFORMATION
  Report Type: Spontaneous
  Country: US (occurrence: None)
  Receive Date: 20150324
  Receipt Date: 20150324
  Transmission Date: 20150721
  Serious: Yes (Life-Threatening, Hospitalization, Disabling)
  Sender: FDA-Public Use
  Company Number: None

PATIENT
  Age: 89 Year
  Sex: Female
  Weight: 33 kg

DRUGS (15)
  1. CYANOCOBALAMIN (VITAMIN B-12) [Concomitant]
  2. RANITIDINE HCL [Concomitant]
     Active Substance: RANITIDINE HYDROCHLORIDE
  3. CILOSTAZOL. [Concomitant]
     Active Substance: CILOSTAZOL
  4. CLOPIDOGREL [Concomitant]
     Active Substance: CLOPIDOGREL BISULFATE
  5. SIMVASTATIN. [Concomitant]
     Active Substance: SIMVASTATIN
  6. PROLIA [Suspect]
     Active Substance: DENOSUMAB
     Indication: OSTEOPOROSIS
     Route: 058
     Dates: start: 20140804
  7. MONTELUKAST [Concomitant]
     Active Substance: MONTELUKAST SODIUM
  8. METOPROLOL SUCCINATE. [Concomitant]
     Active Substance: METOPROLOL SUCCINATE
  9. METFORMIN [Concomitant]
     Active Substance: METFORMIN HYDROCHLORIDE
  10. DICLOFENAC SODIUM. [Concomitant]
     Active Substance: DICLOFENAC SODIUM
  11. VALSARTAN. [Concomitant]
     Active Substance: VALSARTAN
  12. NITROGLYCERIN. [Concomitant]
     Active Substance: NITROGLYCERIN
  13. LIDOCAINE. [Concomitant]
     Active Substance: LIDOCAINE
  14. IPRATROPIUM BROMIDE. [Concomitant]
     Active Substance: IPRATROPIUM BROMIDE
  15. PANTOPRAZOLE [Concomitant]
     Active Substance: PANTOPRAZOLE SODIUM

REACTIONS (17)
  - General physical health deterioration [None]
  - Arthralgia [None]
  - Pain in jaw [None]
  - Dyspnoea [None]
  - Pleural effusion [None]
  - Vision blurred [None]
  - Arterial thrombosis [None]
  - Fatigue [None]
  - Myalgia [None]
  - Skin discolouration [None]
  - Pain [None]
  - Myocardial infarction [None]
  - Muscle spasms [None]
  - Headache [None]
  - Dizziness [None]
  - Hepatic cirrhosis [None]
  - Night sweats [None]

NARRATIVE: CASE EVENT DATE: 20150101
